FAERS Safety Report 5037923-9 (Version None)
Quarter: 2006Q2

REPORT INFORMATION
  Report Type: 
  Country: None (occurrence: None)
  Receive Date: 20060613
  Receipt Date: 20060426
  Transmission Date: 20061013
  Serious: Yes (Hospitalization)
  Sender: FDA-Public Use
  Company Number: US-JNJFOC-20060103924

PATIENT
  Age: 35 Year
  Sex: Female
  Weight: 70.3075 kg

DRUGS (3)
  1. ORTHO EVRA [Suspect]
     Indication: DRUG USE FOR UNKNOWN INDICATION
     Dosage: TRANSDERMAL
     Route: 062
     Dates: start: 20040101, end: 20040522
  2. TOPAMAX [Concomitant]
  3. FLEXERIL [Concomitant]

REACTIONS (2)
  - PELVIC VENOUS THROMBOSIS [None]
  - PULMONARY EMBOLISM [None]
